FAERS Safety Report 6879451-1 (Version None)
Quarter: 2010Q3

REPORT INFORMATION
  Report Type: 
  Country: None (occurrence: None)
  Receive Date: 20100728
  Receipt Date: 20100716
  Transmission Date: 20110219
  Serious: Yes (Hospitalization)
  Sender: FDA-Public Use
  Company Number: AU-WATSON-2010-09645

PATIENT
  Age: 81 Year
  Sex: Female

DRUGS (3)
  1. FLUOROURACIL [Suspect]
     Indication: COLON CANCER
     Dosage: UNK
     Route: 040
  2. CAPECITABINE [Suspect]
     Indication: COLON CANCER
     Dosage: UNK
  3. FOLINIC ACID [Concomitant]
     Indication: COLON CANCER
     Dosage: UNK
     Route: 042

REACTIONS (1)
  - STRESS CARDIOMYOPATHY [None]
